FAERS Safety Report 24534894 (Version 1)
Quarter: 2024Q4

REPORT INFORMATION
  Report Type: Spontaneous
  Country: JP (occurrence: JP)
  Receive Date: 20241022
  Receipt Date: 20241022
  Transmission Date: 20250115
  Serious: Yes (Other)
  Sender: SANDOZ
  Company Number: JP-002147023-NVSJ2022JP004328

PATIENT
  Age: 77 Year
  Sex: Female
  Weight: 45 kg

DRUGS (1)
  1. XYLOCAINE [Suspect]
     Active Substance: LIDOCAINE HYDROCHLORIDE
     Indication: Local anaesthesia
     Dosage: UNK
     Route: 061
     Dates: start: 20210714, end: 20210714

REACTIONS (5)
  - Asthma [Recovered/Resolved]
  - Pallor [Recovered/Resolved]
  - Wheezing [Recovered/Resolved]
  - Peripheral coldness [Recovered/Resolved]
  - Cyanosis [Recovered/Resolved]

NARRATIVE: CASE EVENT DATE: 20210714
